FAERS Safety Report 8984738 (Version 1)
Quarter: 2012Q4

REPORT INFORMATION
  Report Type: Spontaneous
  Country: US (occurrence: None)
  Receive Date: 20121214
  Receipt Date: 20121214
  Transmission Date: 20130627
  Serious: Yes (Other)
  Sender: FDA-Public Use
  Company Number: 2012P1066638

PATIENT
  Age: 66 Year
  Sex: Female

DRUGS (3)
  1. INFUMORPH [Suspect]
  2. INFUMORPH [Suspect]
  3. INFUMORPH [Suspect]

REACTIONS (1)
  - Pain [None]
